FAERS Safety Report 16351807 (Version 1)
Quarter: 2019Q2

REPORT INFORMATION
  Report Type: Spontaneous
  Country: US (occurrence: US)
  Receive Date: 20190419
  Receipt Date: 20190419
  Transmission Date: 20190711
  Serious: No
  Sender: FDA-Public Use
  Company Number: None

PATIENT
  Age: 68 Year
  Sex: Female

DRUGS (1)
  1. IBRANCE [Suspect]
     Active Substance: PALBOCICLIB
     Dosage: OTHER
     Route: 048
     Dates: start: 201603

REACTIONS (5)
  - Injection site pain [None]
  - Pain in extremity [None]
  - Injection site reaction [None]
  - Gait disturbance [None]
  - Injection site bruising [None]

NARRATIVE: CASE EVENT DATE: 20190419
